FAERS Safety Report 9148700 (Version 1)
Quarter: 2013Q1

REPORT INFORMATION
  Report Type: Spontaneous
  Country: US (occurrence: US)
  Receive Date: 20130308
  Receipt Date: 20130308
  Transmission Date: 20140127
  Serious: No
  Sender: FDA-Public Use
  Company Number: US-ENDO PHARMACEUTICALS INC.-OPCR20122009

PATIENT
  Sex: Male

DRUGS (3)
  1. OPANA ER [Suspect]
     Indication: PAIN
     Dosage: 10MG
     Route: 048
     Dates: start: 2012
  2. OPANA ER [Suspect]
     Dosage: 20MG
     Route: 048
     Dates: start: 2012
  3. LYRICA [Concomitant]
     Indication: PRODUCT USED FOR UNKNOWN INDICATION
     Dosage: UNK
     Route: 065

REACTIONS (4)
  - Dysarthria [Unknown]
  - Cognitive disorder [Unknown]
  - Somnolence [Unknown]
  - Drug ineffective [Unknown]
